FAERS Safety Report 14616651 (Version 1)
Quarter: 2018Q1

REPORT INFORMATION
  Report Type: Other
  Country: IT (occurrence: IT)
  Receive Date: 20180309
  Receipt Date: 20180309
  Transmission Date: 20180509
  Serious: Yes (Hospitalization)
  Sender: FDA-Public Use
  Company Number: IT-ACCORD-064319

PATIENT
  Age: 84 Year
  Sex: Male

DRUGS (6)
  1. LANSOPRAZOLE TEVA [Concomitant]
     Active Substance: LANSOPRAZOLE
     Route: 048
  2. CLENILEXX [Concomitant]
     Route: 055
  3. SIMVASTATIN. [Concomitant]
     Active Substance: SIMVASTATIN
     Dosage: 20 MG
     Route: 055
  4. TICLOPIDINE [Concomitant]
     Active Substance: TICLOPIDINE
     Dosage: 250 MG
     Route: 048
  5. ATEM [Concomitant]
     Active Substance: IPRATROPIUM BROMIDE
     Route: 055
  6. RAMIPRIL. [Suspect]
     Active Substance: RAMIPRIL
     Indication: HYPERTENSION
     Route: 048
     Dates: start: 20170101, end: 20170825

REACTIONS (2)
  - Hyperkalaemia [Unknown]
  - Sopor [Unknown]

NARRATIVE: CASE EVENT DATE: 20170825
